FAERS Safety Report 24607822 (Version 1)
Quarter: 2024Q4

REPORT INFORMATION
  Report Type: Spontaneous
  Country: US (occurrence: None)
  Receive Date: 20241111
  Receipt Date: 20241111
  Transmission Date: 20250115
  Serious: Yes (Hospitalization, Other)
  Sender: Public
  Company Number: None

PATIENT
  Age: 29 Year
  Sex: Female
  Weight: 73.8 kg

DRUGS (3)
  1. CEPHALEXIN [Suspect]
     Active Substance: CEPHALEXIN
     Indication: Periorbital cellulitis
     Dosage: OTHER QUANTITY : 1 CAPSULE(S);?FREQUENCY : EVERY 6 HOURS;?
     Route: 048
     Dates: start: 20241110, end: 20241110
  2. Tirepazetide 2.5mg [Concomitant]
  3. Duloxetine 60mg [Concomitant]

REACTIONS (6)
  - Hypersensitivity [None]
  - Pruritus [None]
  - Erythema [None]
  - Urticaria [None]
  - Oedema peripheral [None]
  - Hypotension [None]

NARRATIVE: CASE EVENT DATE: 20241110
